FAERS Safety Report 9204626 (Version 1)
Quarter: 2013Q2

REPORT INFORMATION
  Report Type: Spontaneous
  Country: US (occurrence: US)
  Receive Date: 20130402
  Receipt Date: 20130402
  Transmission Date: 20140414
  Serious: Yes (Other)
  Sender: FDA-Public Use
  Company Number: US-PFIZER INC-2013095745

PATIENT
  Sex: Female

DRUGS (1)
  1. PREPARATION H [Suspect]
     Dosage: UNK, 2X/DAY (ONE IN THE MORNINGS AND ONE AT NIGHT)

REACTIONS (7)
  - Cataract [Unknown]
  - Cough [Unknown]
  - Tremor [Unknown]
  - Chills [Unknown]
  - Dysphonia [Unknown]
  - Fatigue [Unknown]
  - Visual impairment [Unknown]
